FAERS Safety Report 8150354-8 (Version None)
Quarter: 2012Q1

REPORT INFORMATION
  Report Type: 
  Country: None (occurrence: None)
  Receive Date: 20120220
  Receipt Date: 20120214
  Transmission Date: 20120608
  Serious: Yes (Hospitalization)
  Sender: FDA-Public Use
  Company Number: JP-PFIZER INC-2012038961

PATIENT
  Sex: Male

DRUGS (1)
  1. GENOTROPIN [Suspect]
     Dosage: 0.4 MG, 1X/DAY
     Route: 058

REACTIONS (2)
  - CHRONIC GRANULOMATOUS DISEASE [None]
  - INFECTION [None]
